FAERS Safety Report 16380295 (Version 3)
Quarter: 2025Q3

REPORT INFORMATION
  Report Type: Spontaneous
  Country: EU (occurrence: EU)
  Receive Date: 20190601
  Receipt Date: 20250724
  Transmission Date: 20251020
  Serious: Yes (Hospitalization, Other)
  Sender: AUROBINDO
  Company Number: EU-AUROBINDO-AUR-APL-2019-029149

PATIENT
  Age: 11 Year
  Sex: Female
  Weight: 28 kg

DRUGS (11)
  1. ACYCLOVIR [Suspect]
     Active Substance: ACYCLOVIR
     Indication: Mucosal inflammation
     Route: 065
  2. ACYCLOVIR [Suspect]
     Active Substance: ACYCLOVIR
     Indication: Febrile neutropenia
     Dosage: 59 MILLIGRAM/KILOGRAM, ONCE A DAY IN 3 DOSES SINCE DAY -5 TO +14
     Route: 042
  3. AMIKACIN [Suspect]
     Active Substance: AMIKACIN
     Indication: Febrile neutropenia
     Route: 065
  4. AMIKACIN [Suspect]
     Active Substance: AMIKACIN
     Indication: Mucosal inflammation
     Dosage: 18 MILLIGRAM/KILOGRAM, ONCE A DAY, IV 18 MG/KG/DAY IN 1 DOSES SINCE DAY +4 TO +8
     Route: 042
  5. VANCOMYCIN [Suspect]
     Active Substance: VANCOMYCIN
     Indication: Febrile neutropenia
     Dosage: 30 MILLIGRAM/KILOGRAM, ONCE A DAY IN 3 DOSES SINCE DAY +4 TO +19
     Route: 065
  6. VANCOMYCIN [Suspect]
     Active Substance: VANCOMYCIN
     Indication: Mucosal inflammation
  7. CYCLOSPORINE [Concomitant]
     Active Substance: CYCLOSPORINE
     Indication: Immunosuppressant drug therapy
     Route: 065
  8. PREDNISONE [Concomitant]
     Active Substance: PREDNISONE
     Indication: Immunosuppressant drug therapy
     Route: 065
  9. METHYLPREDNISOLONE [Concomitant]
     Active Substance: METHYLPREDNISOLONE
     Indication: Product used for unknown indication
     Route: 042
  10. METHYLPREDNISOLONE [Concomitant]
     Active Substance: METHYLPREDNISOLONE
     Dosage: 10 MILLIGRAM/KILOGRAM, EVERY OTHER DAY
     Route: 042
  11. MYCOPHENOLATE MOFETIL [Concomitant]
     Active Substance: MYCOPHENOLATE MOFETIL
     Indication: Product used for unknown indication
     Route: 065

REACTIONS (3)
  - Oliguria [Recovering/Resolving]
  - Acute kidney injury [Recovered/Resolved]
  - Nephropathy toxic [Recovered/Resolved]
